FAERS Safety Report 17471386 (Version 7)
Quarter: 2020Q2

REPORT INFORMATION
  Report Type: Report from Study
  Country: US (occurrence: US)
  Receive Date: 20200228
  Receipt Date: 20200625
  Transmission Date: 20200713
  Serious: Yes (Death, Other)
  Sender: FDA-Public Use
  Company Number: NVSC2020US056070

PATIENT
  Age: 84 Year
  Sex: Male

DRUGS (3)
  1. ILARIS [Suspect]
     Active Substance: CANAKINUMAB
     Indication: STILL^S DISEASE
  2. ILARIS [Suspect]
     Active Substance: CANAKINUMAB
     Indication: JUVENILE IDIOPATHIC ARTHRITIS
  3. ILARIS [Suspect]
     Active Substance: CANAKINUMAB
     Indication: RHEUMATOID ARTHRITIS
     Dosage: 150 MG, Q4W
     Route: 058
     Dates: start: 20191023

REACTIONS (4)
  - Infection [Unknown]
  - Nasopharyngitis [Unknown]
  - Death [Fatal]
  - Cellulitis staphylococcal [Unknown]

NARRATIVE: CASE EVENT DATE: 202002
